FAERS Safety Report 19549015 (Version 6)
Quarter: 2022Q1

REPORT INFORMATION
  Report Type: Spontaneous
  Country: US (occurrence: US)
  Receive Date: 20210715
  Receipt Date: 20220304
  Transmission Date: 20220423
  Serious: Yes (Hospitalization)
  Sender: FDA-Public Use
  Company Number: US-BIOCODEX2-2021000879

PATIENT

DRUGS (6)
  1. DIACOMIT [Suspect]
     Active Substance: STIRIPENTOL
     Indication: Severe myoclonic epilepsy of infancy
     Dosage: 500 MG, QD (250MG,MIX 1 PACKET -250MG- IN 100ML OF WATER. GIVE 50ML VIA GTUBE TWICE A DAY FOR 2 WEEK
     Route: 065
     Dates: start: 20210604
  2. DIACOMIT [Suspect]
     Active Substance: STIRIPENTOL
     Dosage: 500 MG, QD (250 MG TWICE A DAY)
     Route: 065
  3. DIACOMIT [Suspect]
     Active Substance: STIRIPENTOL
     Dosage: 500 MG, QD (250MG TWICE A DAY)
     Route: 050
  4. ONFI [Concomitant]
     Active Substance: CLOBAZAM
     Indication: Epilepsy
     Dosage: 25 MG, QD (12.5MG TWICE DAILY)
     Route: 050
  5. FINTEPLA [Concomitant]
     Active Substance: FENFLURAMINE
     Indication: Epilepsy
     Dosage: 16.6 MG, QD (8.3MG TWICE DAILY)
     Route: 050
  6. PHENOBARBITAL [Concomitant]
     Active Substance: PHENOBARBITAL
     Indication: Epilepsy
     Dosage: 60 MG, QD (30MG TWICE DAILY)
     Route: 050

REACTIONS (1)
  - Seizure [Unknown]
